FAERS Safety Report 25777161 (Version 1)
Quarter: 2025Q3

REPORT INFORMATION
  Report Type: Spontaneous
  Country: US (occurrence: US)
  Receive Date: 20250909
  Receipt Date: 20250909
  Transmission Date: 20251020
  Serious: No
  Sender: DOMPE FARMACEUTICI
  Company Number: US-FARMAPROD-202410-3540

PATIENT
  Age: 33 Year
  Sex: Female

DRUGS (2)
  1. OXERVATE [Suspect]
     Active Substance: CENEGERMIN-BKBJ
     Indication: Neurotrophic keratopathy
     Route: 047
     Dates: start: 20241002, end: 20241012
  2. PRESERVATIVE FREE [Concomitant]
     Indication: Dry eye
     Dates: start: 20240701

REACTIONS (5)
  - Eyelid ptosis [Recovered/Resolved]
  - Eye pain [Unknown]
  - Photophobia [Unknown]
  - Eye irritation [Unknown]
  - Vision blurred [Unknown]

NARRATIVE: CASE EVENT DATE: 20241010
